FAERS Safety Report 4948351-6 (Version None)
Quarter: 2006Q1

REPORT INFORMATION
  Report Type: 
  Country: None (occurrence: None)
  Receive Date: 20060320
  Receipt Date: 20031030
  Transmission Date: 20060701
  Serious: Yes (Hospitalization, Disabling)
  Sender: FDA-Public Use
  Company Number: CA-ROCHE-350256

PATIENT
  Age: 74 Year
  Sex: Female
  Weight: 48.1 kg

DRUGS (7)
  1. PEG-INTERFERON ALFA 2A (RO 25-8310) [Suspect]
     Route: 058
     Dates: start: 20030429, end: 20031001
  2. RIBAVIRIN [Suspect]
     Route: 048
     Dates: start: 20030513, end: 20030527
  3. RIBAVIRIN [Suspect]
     Route: 048
     Dates: start: 20030429
  4. LOSEC [Concomitant]
     Dates: start: 19930615
  5. LASIX [Concomitant]
     Dates: start: 20020615
  6. DIDROCAL [Concomitant]
     Dates: start: 20020615
  7. HYDROCHLOROTHIAZIDE [Concomitant]

REACTIONS (1)
  - POLYMYALGIA RHEUMATICA [None]
